FAERS Safety Report 12723737 (Version 1)
Quarter: 2016Q3

REPORT INFORMATION
  Report Type: Spontaneous
  Country: US (occurrence: US)
  Receive Date: 20160908
  Receipt Date: 20160908
  Transmission Date: 20161109
  Serious: No
  Sender: FDA-Public Use
  Company Number: US-ASTRAZENECA-2016SE90876

PATIENT
  Sex: Male

DRUGS (1)
  1. METOPROLOL SUCCINATE. [Suspect]
     Active Substance: METOPROLOL SUCCINATE
     Dosage: 25.0MG UNKNOWN
     Route: 050

REACTIONS (5)
  - Product use issue [Unknown]
  - Off label use [Unknown]
  - Joint swelling [Unknown]
  - Cardiac fibrillation [Unknown]
  - Dyspnoea [Unknown]
